FAERS Safety Report 17227657 (Version 2)
Quarter: 2020Q1

REPORT INFORMATION
  Report Type: Spontaneous
  Country: DE (occurrence: DE)
  Receive Date: 20200103
  Receipt Date: 20200121
  Transmission Date: 20200409
  Serious: Yes (Other)
  Sender: FDA-Public Use
  Company Number: DE-AUROBINDO-AUR-APL-2019-108118

PATIENT
  Age: 67 Year
  Sex: Female

DRUGS (2)
  1. IBUPROFEN. [Suspect]
     Active Substance: IBUPROFEN
     Indication: PAIN
     Dosage: 1200 MILLIGRAM, (30 D/M)
     Route: 065
  2. ETORICOXIB FILM COATED TABLET [Suspect]
     Active Substance: ETORICOXIB
     Indication: PAIN
     Dosage: 90 MILLIGRAM, ONCE A DAY (30 D/M)
     Route: 048

REACTIONS (3)
  - Back pain [Recovered/Resolved]
  - Drug ineffective [Recovering/Resolving]
  - Intentional product misuse [Recovered/Resolved]
